FAERS Safety Report 6213878-6 (Version None)
Quarter: 2009Q2

REPORT INFORMATION
  Report Type: 
  Country: None (occurrence: None)
  Receive Date: 20090602
  Receipt Date: 20090602
  Transmission Date: 20091009
  Serious: Yes (Life-Threatening, Hospitalization)
  Sender: FDA-Public Use
  Company Number: None

PATIENT
  Age: 45 Year
  Sex: Female

DRUGS (1)
  1. NAPROXEN [Suspect]
     Indication: OSTEOARTHRITIS
     Dosage: 500 MG BID PO
     Route: 048
     Dates: start: 20090114, end: 20090430

REACTIONS (4)
  - POST PROCEDURAL DISCHARGE [None]
  - SMALL INTESTINAL OBSTRUCTION [None]
  - SMALL INTESTINE ULCER [None]
  - WOUND DRAINAGE [None]
